FAERS Safety Report 9860591 (Version 2)
Quarter: 2014Q1

REPORT INFORMATION
  Report Type: Spontaneous
  Country: ZA (occurrence: ZA)
  Receive Date: 20140202
  Receipt Date: 20140202
  Transmission Date: 20141002
  Serious: No
  Sender: FDA-Public Use
  Company Number: ZA-ALLERGAN-1217833US

PATIENT
  Age: 6 Year
  Sex: Male
  Weight: 18.8 kg

DRUGS (9)
  1. BOTOX [Suspect]
     Indication: CEREBRAL PALSY
     Dosage: 40 UNITS, SINGLE
     Route: 030
     Dates: start: 20121123, end: 20121123
  2. BOTOX [Suspect]
     Indication: MUSCLE SPASTICITY
     Dosage: 70 UNITS, SINGLE
     Route: 030
     Dates: start: 20121123, end: 20121123
  3. BOTOX [Suspect]
     Dosage: 40 UNITS, SINGLE
     Route: 030
     Dates: start: 20121123, end: 20121123
  4. BOTOX [Suspect]
     Dosage: 20 UNITS, SINGLE
     Route: 030
     Dates: start: 20121123, end: 20121123
  5. BOTOX [Suspect]
     Dosage: 160 UNITS, SINGLE
     Route: 030
     Dates: start: 20121123, end: 20121123
  6. BOTOX [Suspect]
     Dosage: 80 UNITS, SINGLE
     Route: 030
     Dates: start: 20121123, end: 20121123
  7. BOTOX [Suspect]
     Dosage: 65 UNITS, SINGLE
     Route: 030
     Dates: start: 20121123, end: 20121123
  8. BOTOX [Suspect]
     Dosage: 40 UNITS, SINGLE
     Route: 030
     Dates: start: 20121123, end: 20121123
  9. BOTOX [Suspect]
     Dosage: 25 UNITS, SINGLE
     Route: 030
     Dates: start: 20121123, end: 20121123

REACTIONS (5)
  - Lethargy [Recovered/Resolved]
  - Eyelid ptosis [Recovered/Resolved]
  - Fatigue [Recovered/Resolved]
  - Strabismus [Recovered/Resolved]
  - Overdose [Unknown]
